FAERS Safety Report 5001760-1 (Version None)
Quarter: 2006Q2

REPORT INFORMATION
  Report Type: 
  Country: None (occurrence: None)
  Receive Date: 20060515
  Receipt Date: 20060505
  Transmission Date: 20061013
  Serious: Yes (Disabling, Other)
  Sender: FDA-Public Use
  Company Number: PHBS2006ES06738

PATIENT
  Age: 80 Year
  Sex: Female

DRUGS (2)
  1. ZOMETA [Suspect]
     Indication: MULTIPLE MYELOMA
     Dosage: 4 MG, QMO
     Route: 042
     Dates: start: 20030301, end: 20040801
  2. VELCADE [Concomitant]

REACTIONS (8)
  - BONE DISORDER [None]
  - DENTAL EXAMINATION ABNORMAL [None]
  - HYPOAESTHESIA [None]
  - MASS [None]
  - OSTEONECROSIS [None]
  - PAIN IN JAW [None]
  - PERIODONTITIS [None]
  - TOOTH EXTRACTION [None]
